FAERS Safety Report 20899689 (Version 3)
Quarter: 2022Q3

REPORT INFORMATION
  Report Type: Spontaneous
  Country: US (occurrence: US)
  Receive Date: 20220601
  Receipt Date: 20220913
  Transmission Date: 20221027
  Serious: Yes (Other)
  Sender: FDA-Public Use
  Company Number: US-Calliditas-2022CAL00090

PATIENT
  Age: 33 Year
  Sex: Male

DRUGS (10)
  1. TARPEYO [Suspect]
     Active Substance: BUDESONIDE
     Indication: IgA nephropathy
     Dosage: 16 MG (4 MG CAPSULES) DAILY
     Route: 050
     Dates: start: 20220506, end: 202206
  2. MYCOPHENOLIC ACID [Concomitant]
     Active Substance: MYCOPHENOLIC ACID
  3. ROSUVASTATIN [Concomitant]
     Active Substance: ROSUVASTATIN
  4. PREDNISONE [Concomitant]
     Active Substance: PREDNISONE
  5. CARVEDILOL [Concomitant]
     Active Substance: CARVEDILOL
  6. TORSEMIDE [Concomitant]
     Active Substance: TORSEMIDE
  7. CALCIUM ACETATE [Concomitant]
     Active Substance: CALCIUM ACETATE
  8. DIALYVITE [Concomitant]
     Active Substance: ASCORBIC ACID\BIOTIN\CALCIUM PANTOTHENATE\COBALAMIN\FOLIC ACID\NIACINAMIDE\PYRIDOXINE HYDROCHLORIDE\
  9. CLOMIPHENE CITRATE [Concomitant]
     Active Substance: CLOMIPHENE CITRATE
  10. ANASTROZOLE [Concomitant]
     Active Substance: ANASTROZOLE

REACTIONS (9)
  - Peripheral swelling [Recovered/Resolved]
  - Contusion [Recovered/Resolved]
  - Dyspnoea [Recovered/Resolved]
  - Oedema [Recovered/Resolved]
  - Presyncope [Recovered/Resolved]
  - Weight increased [Recovered/Resolved]
  - Intentional dose omission [Recovered/Resolved]
  - Intentional underdose [Recovered/Resolved]
  - Dizziness [Recovered/Resolved]

NARRATIVE: CASE EVENT DATE: 20220510
